FAERS Safety Report 9025912 (Version 1)
Quarter: 2013Q1

REPORT INFORMATION
  Report Type: Spontaneous
  Country: US (occurrence: None)
  Receive Date: 20130104
  Receipt Date: 20130104
  Transmission Date: 20140127
  Serious: Yes (Other)
  Sender: FDA-Public Use
  Company Number: 12-00392

PATIENT
  Age: 76 Year
  Sex: Female

DRUGS (2)
  1. ASTHMANEFRIN [Suspect]
     Indication: BRONCHITIS CHRONIC
  2. ASTHMANEFRIN [Suspect]
     Indication: EMPHYSEMA

REACTIONS (4)
  - Haemoptysis [None]
  - Throat irritation [None]
  - Cough [None]
  - Ill-defined disorder [None]
